FAERS Safety Report 7980254-5 (Version None)
Quarter: 2011Q4

REPORT INFORMATION
  Report Type: 
  Country: None (occurrence: None)
  Receive Date: 20111129
  Receipt Date: 20110926
  Transmission Date: 20120403
  Serious: Yes (Hospitalization)
  Sender: FDA-Public Use
  Company Number: WAES 1109USA02879

PATIENT
  Age: 62 Year
  Sex: Female

DRUGS (1)
  1. CLINORIL [Suspect]
     Dosage: UNK/UNK/PO
     Route: 048

REACTIONS (3)
  - ANAEMIA [None]
  - GASTROINTESTINAL HAEMORRHAGE [None]
  - NAUSEA [None]
